FAERS Safety Report 6521160-2 (Version None)
Quarter: 2009Q4

REPORT INFORMATION
  Report Type: 
  Country: None (occurrence: None)
  Receive Date: 20091222
  Receipt Date: 20091216
  Transmission Date: 20100525
  Serious: Yes (Other)
  Sender: FDA-Public Use
  Company Number: SPV1-2009-02546

PATIENT
  Age: 76 Year
  Sex: Female

DRUGS (7)
  1. PENTASA [Suspect]
     Indication: CROHN'S DISEASE
     Dosage: 500 MG,2X/DAY:BID, ORAL
     Route: 048
     Dates: start: 20060101
  2. BUDESONIDE [Concomitant]
  3. LIBRAX [Concomitant]
  4. RYTHMOL /00546302/ (PROPAFENONE HYDROCHLORIDE) [Concomitant]
  5. LANOXIN [Concomitant]
  6. WELCHOL [Concomitant]
  7. FLORESTOR /01686601/ (SACCHAROMYCES BOULARDIL LYOPHILIZED) [Concomitant]

REACTIONS (4)
  - ALOPECIA [None]
  - INTESTINAL OBSTRUCTION [None]
  - OFF LABEL USE [None]
  - THROMBOSIS [None]
